FAERS Safety Report 4322309-2 (Version None)
Quarter: 2004Q1

REPORT INFORMATION
  Report Type: 
  Country: None (occurrence: None)
  Receive Date: 20040319
  Receipt Date: 20040303
  Transmission Date: 20041129
  Serious: Yes (Hospitalization)
  Sender: FDA-Public Use
  Company Number: DSA_24078_2004

PATIENT
  Age: 50 Year
  Sex: Female

DRUGS (7)
  1. ENALAPRIL MALEATE [Suspect]
     Indication: HYPERTENSION
     Dosage: 2.5 MG BID PO
     Route: 048
     Dates: end: 20030705
  2. FALITHROM [Suspect]
     Indication: AORTIC VALVE REPLACEMENT
     Dosage: 1.5 MG QD PO
     Route: 048
     Dates: start: 20010101, end: 20030705
  3. ISOPTIN TAB [Suspect]
     Indication: HYPERTENSION
     Dosage: 80 MG TID PO
     Route: 048
     Dates: end: 20030705
  4. INDOMETHACIN [Suspect]
     Indication: PAIN
     Dosage: 50 MG PRN PO
     Route: 048
     Dates: end: 20030705
  5. BELOC ZOK [Suspect]
     Indication: HYPERTENSION
     Dosage: 47.5 MG QD PO
     Route: 048
  6. BERODUAL [Concomitant]
  7. DIGOXIN [Concomitant]

REACTIONS (21)
  - ABDOMINAL PAIN [None]
  - ACTIVATED PARTIAL THROMBOPLASTIN TIME PROLONGED [None]
  - ASTHENIA [None]
  - DEHYDRATION [None]
  - DRUG INTERACTION [None]
  - GASTRITIS [None]
  - GASTROINTESTINAL DISORDER [None]
  - GASTROINTESTINAL HAEMORRHAGE [None]
  - HAEMATOCRIT DECREASED [None]
  - HAEMOGLOBIN DECREASED [None]
  - HAEMORRHAGE [None]
  - HYPOTENSION [None]
  - INTERNATIONAL NORMALISED RATIO INCREASED [None]
  - MELAENA [None]
  - OEDEMA PERIPHERAL [None]
  - OVERDOSE [None]
  - PAIN IN EXTREMITY [None]
  - PARAESTHESIA [None]
  - POLYNEUROPATHY [None]
  - PYREXIA [None]
  - RENAL FAILURE [None]
